FAERS Safety Report 20002696 (Version 2)
Quarter: 2021Q4

REPORT INFORMATION
  Report Type: Spontaneous
  Country: JP (occurrence: JP)
  Receive Date: 20211027
  Receipt Date: 20211112
  Transmission Date: 20220303
  Serious: Yes (Other)
  Sender: FDA-Public Use
  Company Number: JP-FERRING-EVA202101634FERRINGPH

PATIENT
  Age: 40 Year
  Sex: Female
  Weight: 57.9 kg

DRUGS (1)
  1. DINOPROSTONE [Suspect]
     Active Substance: DINOPROSTONE
     Indication: Induction of cervix ripening
     Route: 067
     Dates: start: 20210318, end: 20210318

REACTIONS (2)
  - Amniotic cavity infection [Recovering/Resolving]
  - Third stage postpartum haemorrhage [Recovered/Resolved]

NARRATIVE: CASE EVENT DATE: 20210319
